FAERS Safety Report 4921485-8 (Version None)
Quarter: 2006Q1

REPORT INFORMATION
  Report Type: 
  Country: None (occurrence: None)
  Receive Date: 20060224
  Receipt Date: 20060214
  Transmission Date: 20060701
  Serious: Yes (Other)
  Sender: FDA-Public Use
  Company Number: PHBS2006BR02467

PATIENT
  Age: 47 Year
  Sex: Female

DRUGS (1)
  1. ZOMETA [Suspect]
     Indication: BREAST CANCER FEMALE
     Dosage: 4 MG, UNK
     Dates: start: 20031001, end: 20051101

REACTIONS (6)
  - ABSCESS ORAL [None]
  - IMPAIRED HEALING [None]
  - INFLAMMATION [None]
  - ORAL INFECTION [None]
  - OSTEONECROSIS [None]
  - WOUND DEBRIDEMENT [None]
